FAERS Safety Report 16261923 (Version 2)
Quarter: 2019Q2

REPORT INFORMATION
  Report Type: Report from Study
  Country: US (occurrence: US)
  Receive Date: 20190501
  Receipt Date: 20190606
  Transmission Date: 20190711
  Serious: Yes (Other)
  Sender: FDA-Public Use
  Company Number: US-PFIZER INC-2019012531

PATIENT
  Age: 71 Year
  Sex: Female

DRUGS (3)
  1. IBRANCE [Suspect]
     Active Substance: PALBOCICLIB
     Indication: BREAST CANCER FEMALE
     Dosage: 125 MG, CYCLIC (21 DAYS ON AND THEN 7 DAYS OFF)
     Route: 048
     Dates: start: 20181219
  2. IBRANCE [Suspect]
     Active Substance: PALBOCICLIB
     Dosage: 100 MG, CYCLIC (ONCE A DAY, 21 DAYS ON, 7 DAYS OFF)
     Route: 048
     Dates: start: 201901, end: 2019
  3. IBRANCE [Suspect]
     Active Substance: PALBOCICLIB
     Dosage: 100 MG, CYCLIC (ONCE A DAY, 21 DAYS ON, 7 DAYS OFF)
     Route: 048
     Dates: start: 2019

REACTIONS (21)
  - Constipation [Unknown]
  - White blood cell count decreased [Unknown]
  - Depressed mood [Unknown]
  - Dyspnoea exertional [Unknown]
  - Alopecia [Unknown]
  - Neuropathy peripheral [Unknown]
  - Vision blurred [Unknown]
  - Poor quality sleep [Unknown]
  - Anger [Unknown]
  - Dry eye [Unknown]
  - Osteonecrosis of jaw [Recovering/Resolving]
  - Oedema peripheral [Unknown]
  - Tooth abscess [Recovering/Resolving]
  - Disease recurrence [Recovering/Resolving]
  - Dyspnoea [Not Recovered/Not Resolved]
  - Neutrophil count decreased [Unknown]
  - Fatigue [Not Recovered/Not Resolved]
  - Back pain [Unknown]
  - Abdominal distension [Unknown]
  - Disease recurrence [Unknown]
  - Red blood cell count decreased [Unknown]

NARRATIVE: CASE EVENT DATE: 2019
